FAERS Safety Report 16782496 (Version 2)
Quarter: 2019Q3

REPORT INFORMATION
  Report Type: Spontaneous
  Country: US (occurrence: US)
  Receive Date: 20190906
  Receipt Date: 20190917
  Transmission Date: 20191005
  Serious: No
  Sender: FDA-Public Use
  Company Number: US-GLAXOSMITHKLINE-US2019159081

PATIENT
  Age: 96 Year
  Sex: Female

DRUGS (2)
  1. FLONASE [Suspect]
     Active Substance: FLUTICASONE PROPIONATE
     Indication: HYPERSENSITIVITY
     Dosage: 2 PUFF(S), UNK ( I USE IT TWICE A DAY 3 MONTHS OUT OF THE YEAR AND THE REST OF THE TIME I ONLY USE )
     Route: 045
  2. FLONASE [Suspect]
     Active Substance: FLUTICASONE PROPIONATE
     Dosage: 2 PUFF(S), UNK ( I USE IT TWICE A DAY 3 MONTHS OUT OF THE YEAR AND THE REST OF THE TIME I ONLY USE)

REACTIONS (4)
  - Incorrect product administration duration [Unknown]
  - Product complaint [Unknown]
  - Product package associated injury [Unknown]
  - Pain in extremity [Unknown]

NARRATIVE: CASE EVENT DATE: 20190829
